FAERS Safety Report 24179331 (Version 1)
Quarter: 2024Q3

REPORT INFORMATION
  Report Type: Spontaneous
  Country: US (occurrence: None)
  Receive Date: 20240805
  Receipt Date: 20240805
  Transmission Date: 20241016
  Serious: Yes (Hospitalization)
  Sender: Public
  Company Number: None

PATIENT
  Sex: Female

DRUGS (11)
  1. MYCOPHENOLIC ACID [Suspect]
     Active Substance: MYCOPHENOLIC ACID
     Indication: Renal transplant
     Dosage: FREQUENCY : DAILY;?
     Route: 048
     Dates: start: 20170222
  2. AMLODIPINE TAB 5MG [Concomitant]
  3. ASPIRIN LOW TAB 81MG EC [Concomitant]
  4. ATENOLOL TAB 25MG [Concomitant]
  5. CALCIUM/D TAB 500MG [Concomitant]
  6. co q10 CAP 60MG [Concomitant]
  7. CYMBALTA CAP 60MG [Concomitant]
  8. GABAPENTIN [Concomitant]
     Active Substance: GABAPENTIN
  9. GLUCOSAMINE TAB S00MG [Concomitant]
  10. LOSARTAN POT TAB 25MG [Concomitant]
  11. LYRICA CAP 75MG [Concomitant]

REACTIONS (3)
  - Urinary tract infection [None]
  - Sepsis [None]
  - Therapy interrupted [None]
